FAERS Safety Report 6345988-7 (Version None)
Quarter: 2009Q3

REPORT INFORMATION
  Report Type: 
  Country: None (occurrence: None)
  Receive Date: 20090821
  Receipt Date: 20090722
  Transmission Date: 20100115
  Serious: No
  Sender: FDA-Public Use
  Company Number: 8048719

PATIENT
  Age: 26 Year
  Sex: Female
  Weight: 49.8 kg

DRUGS (3)
  1. CIMZIA [Suspect]
     Indication: CROHN'S DISEASE
     Dosage: 400 MG SC
     Route: 058
     Dates: start: 20090622
  2. FOLIC ACID [Concomitant]
  3. CALCIUM PLUS [Concomitant]

REACTIONS (5)
  - DIARRHOEA [None]
  - HAEMATOCHEZIA [None]
  - INJECTION SITE RASH [None]
  - PAIN [None]
  - WEIGHT DECREASED [None]
